FAERS Safety Report 9026021 (Version 1)
Quarter: 2013Q1

REPORT INFORMATION
  Report Type: Spontaneous
  Country: MX (occurrence: MX)
  Receive Date: 20130122
  Receipt Date: 20130122
  Transmission Date: 20140127
  Serious: Yes (Other)
  Sender: FDA-Public Use
  Company Number: PHHY2013MX005128

PATIENT
  Age: 90 Year
  Sex: Female

DRUGS (1)
  1. DIOVAN [Suspect]
     Indication: HYPERTENSION
     Dosage: 2 DF, DAILY (320 MG)
     Route: 048
     Dates: start: 20121008, end: 20130110

REACTIONS (2)
  - Pneumonia [Not Recovered/Not Resolved]
  - Disease progression [Not Recovered/Not Resolved]
